FAERS Safety Report 11292652 (Version 1)
Quarter: 2015Q2

REPORT INFORMATION
  Report Type: Spontaneous
  Country: US (occurrence: None)
  Receive Date: 20150623
  Receipt Date: 20150623
  Transmission Date: 20150821
  Serious: Yes (Other)
  Sender: FDA-Public Use
  Company Number: RB-75073-2015

PATIENT
  Age: 21 Year
  Sex: Male

DRUGS (1)
  1. DEXTROMETHORPHAN\GUAIFENESIN [Suspect]
     Active Substance: DEXTROMETHORPHAN\GUAIFENESIN
     Indication: DRUG ABUSE
     Dates: start: 20130321

REACTIONS (7)
  - Drug abuse [None]
  - Amnesia [None]
  - Impulse-control disorder [None]
  - Enuresis [None]
  - Intentional overdose [None]
  - Aggression [None]
  - Incorrect drug administration duration [None]
